FAERS Safety Report 7749814-0 (Version None)
Quarter: 2011Q3

REPORT INFORMATION
  Report Type: 
  Country: None (occurrence: None)
  Receive Date: 20110914
  Receipt Date: 20110826
  Transmission Date: 20111222
  Serious: No
  Sender: FDA-Public Use
  Company Number: US-BAYER-2011-081588

PATIENT
  Age: 75 Year
  Sex: Male
  Weight: 91 kg

DRUGS (3)
  1. THYROID TAB [Concomitant]
  2. ALEVE (CAPLET) [Suspect]
     Indication: ANALGESIC THERAPY
     Dosage: 2 DF, QD
     Route: 048
     Dates: start: 20110822, end: 20110825
  3. CHOLESTEROL [Concomitant]

REACTIONS (2)
  - TONGUE PIGMENTATION [None]
  - SWOLLEN TONGUE [None]
